FAERS Safety Report 8181963 (Version 3)
Quarter: 2013Q3

REPORT INFORMATION
  Report Type: Report from Study
  Country: CA (occurrence: CA)
  Receive Date: 20111014
  Receipt Date: 20130821
  Transmission Date: 20140515
  Serious: Yes (Death, Hospitalization, Other)
  Sender: FDA-Public Use
  Company Number: PHHY2011CA89004

PATIENT
  Age: 63 Year
  Sex: Male

DRUGS (2)
  1. GLIVEC [Suspect]
     Indication: CHRONIC MYELOID LEUKAEMIA
     Dosage: 400 MG, QD
     Route: 048
     Dates: start: 2002
  2. CHEMOTHERAPEUTICS [Concomitant]

REACTIONS (11)
  - Death [Fatal]
  - Pancreatic carcinoma [Unknown]
  - Second primary malignancy [Unknown]
  - Subdural haematoma [Recovered/Resolved]
  - Cerebral haemorrhage [Unknown]
  - Convulsion [Unknown]
  - Headache [Unknown]
  - Metastases to gastrointestinal tract [Unknown]
  - Pulmonary thrombosis [Unknown]
  - Thrombosis [Unknown]
  - Sinusitis [Unknown]
